FAERS Safety Report 23075732 (Version 1)
Quarter: 2023Q4

REPORT INFORMATION
  Report Type: Spontaneous
  Country: RU (occurrence: None)
  Receive Date: 20231017
  Receipt Date: 20231017
  Transmission Date: 20240109
  Serious: Yes (Other)
  Sender: FDA-Public Use
  Company Number: RU-ROCHE-3438554

PATIENT
  Age: 46 Year
  Sex: Male

DRUGS (3)
  1. ATEZOLIZUMAB [Suspect]
     Active Substance: ATEZOLIZUMAB
     Indication: Malignant melanoma
     Route: 065
  2. VEMURAFENIB [Suspect]
     Active Substance: VEMURAFENIB
     Indication: Malignant melanoma
     Route: 065
  3. COBIMETINIB [Suspect]
     Active Substance: COBIMETINIB
     Indication: Malignant melanoma
     Route: 065

REACTIONS (2)
  - Retinopathy [Unknown]
  - Off label use [Unknown]
